FAERS Safety Report 9024325 (Version 1)
Quarter: 2013Q1

REPORT INFORMATION
  Report Type: Spontaneous
  Country: US (occurrence: US)
  Receive Date: 20130121
  Receipt Date: 20130121
  Transmission Date: 20140127
  Serious: Yes (Other)
  Sender: FDA-Public Use
  Company Number: PHEH2013US001501

PATIENT
  Sex: Female

DRUGS (5)
  1. TEGRETOL [Suspect]
  2. GEODON [Suspect]
     Indication: AFFECTIVE DISORDER
     Dosage: 100 MG (20 MG IN THE MORNING AND 80 MG AT NIGHT)
  3. LAMOTRIGINE [Concomitant]
     Dosage: 200 MG, UNK
  4. TRAZODONE [Concomitant]
     Dosage: 50 MG, UNK
  5. LORAZEPAM [Concomitant]

REACTIONS (4)
  - Convulsion [Unknown]
  - Flat affect [Unknown]
  - Disturbance in attention [Unknown]
  - Sedation [Unknown]
